FAERS Safety Report 4680540-0 (Version None)
Quarter: 2005Q2

REPORT INFORMATION
  Report Type: 
  Country: None (occurrence: None)
  Receive Date: 20050601
  Receipt Date: 20050513
  Transmission Date: 20051028
  Serious: Yes (Death, Hospitalization, Disabling)
  Sender: FDA-Public Use
  Company Number: FR_050406246

PATIENT
  Age: 59 Year
  Sex: Male
  Weight: 69 kg

DRUGS (2)
  1. GEMZAR [Suspect]
     Indication: LUNG ADENOCARCINOMA
     Dosage: 1250 MG/M2 OTHER
     Route: 050
     Dates: start: 20050321, end: 20050329
  2. CISPLATIN [Concomitant]

REACTIONS (4)
  - FEEDING DISORDER [None]
  - MUCOSAL INFLAMMATION [None]
  - PROCTITIS [None]
  - STOMATITIS [None]
